FAERS Safety Report 8923751 (Version 1)
Quarter: 2012Q4

REPORT INFORMATION
  Report Type: 
  Country: US (occurrence: US)
  Receive Date: 20121126
  Receipt Date: 20121126
  Transmission Date: 20130627
  Serious: Yes (Other)
  Sender: FDA-Public Use
  Company Number: US-BAYER-2012-121483

PATIENT
  Age: 23 Year
  Sex: Female
  Weight: 106.12 kg

DRUGS (10)
  1. YAZ [Suspect]
  2. SINGULAIR [Concomitant]
     Dosage: 10 mg, 1 tablet once daily
  3. ZITHROMAX [Concomitant]
     Dosage: 250 mg, UNK
  4. ALBUTEROL [Concomitant]
     Dosage: 90 mcg, 2 puffs before exercise and prn
  5. SEPTRA DS [Concomitant]
     Dosage: 800-160 mg , 3 now and then 1 BID
  6. MODICON [Concomitant]
     Dosage: UNK
  7. VICODIN [Concomitant]
     Dosage: 10/650, 1 tablet every 4 hours
  8. ASPIRIN [Concomitant]
     Dosage: 325 mg, UNK
  9. LORCET [Concomitant]
     Indication: PAIN
  10. TYLENOL WITH CODEINE [Concomitant]

REACTIONS (2)
  - Venous thrombosis limb [None]
  - Cholelithiasis [None]
